FAERS Safety Report 9588374 (Version 1)
Quarter: 2013Q4

REPORT INFORMATION
  Report Type: Spontaneous
  Country: US (occurrence: US)
  Receive Date: 20131003
  Receipt Date: 20131003
  Transmission Date: 20140711
  Serious: No
  Sender: FDA-Public Use
  Company Number: US-AMGEN-USASP2012063724

PATIENT
  Age: 49 Year
  Sex: Female

DRUGS (1)
  1. ENBREL [Suspect]
     Indication: PSORIASIS
     Dosage: 50 MG, QWK
     Dates: start: 20120801, end: 20120815

REACTIONS (11)
  - Hypersensitivity [Recovered/Resolved]
  - Oropharyngeal pain [Recovered/Resolved]
  - Mouth ulceration [Recovered/Resolved]
  - Cough [Recovered/Resolved]
  - Dyspnoea [Recovered/Resolved]
  - Rash [Recovered/Resolved]
  - Eye infection [Recovered/Resolved]
  - Urticaria [Recovered/Resolved]
  - Bronchitis [Recovered/Resolved]
  - Injection site swelling [Recovered/Resolved]
  - Injection site pain [Recovered/Resolved]
